FAERS Safety Report 5254887-3 (Version None)
Quarter: 2007Q1

REPORT INFORMATION
  Report Type: 
  Country: None (occurrence: None)
  Receive Date: 20070305
  Receipt Date: 20070228
  Transmission Date: 20070707
  Serious: Yes (Death, Other)
  Sender: FDA-Public Use
  Company Number: PHBS2006DE15397

PATIENT
  Age: 44 Year
  Sex: Female

DRUGS (1)
  1. ZOMETA [Suspect]
     Indication: BREAST CANCER
     Dates: start: 20020801

REACTIONS (2)
  - DEATH [None]
  - OSTEONECROSIS [None]
